FAERS Safety Report 19176127 (Version 1)
Quarter: 2021Q2

REPORT INFORMATION
  Report Type: Report from Study
  Country: CA (occurrence: CA)
  Receive Date: 20210424
  Receipt Date: 20210424
  Transmission Date: 20210717
  Serious: Yes (Other)
  Sender: FDA-Public Use
  Company Number: CA-SHIRE-CA202011382AA

PATIENT
  Age: 74 Year
  Sex: Male

DRUGS (3)
  1. BERINERT [Concomitant]
     Active Substance: HUMAN C1-ESTERASE INHIBITOR
     Indication: PRODUCT USED FOR UNKNOWN INDICATION
     Dosage: 1500 INTERNATIONAL UNIT, EVERY 3 DAYS
     Route: 065
     Dates: start: 20061231
  2. ICATIBANT [Suspect]
     Active Substance: ICATIBANT ACETATE
     Indication: HEREDITARY ANGIOEDEMA
     Dosage: 30MG/3ML, AS REQ^D
     Route: 065
     Dates: start: 20160310
  3. ICATIBANT [Suspect]
     Active Substance: ICATIBANT ACETATE
     Indication: HEREDITARY ANGIOEDEMA
     Dosage: 30MG/3ML, AS REQ^D
     Route: 065
     Dates: start: 20160310

REACTIONS (8)
  - Abdominal distension [Recovered/Resolved]
  - Hereditary angioedema [Unknown]
  - Nausea [Recovered/Resolved]
  - Diverticulitis [Unknown]
  - Abdominal pain [Recovered/Resolved]
  - Swelling [Recovered/Resolved]
  - Haematochezia [Recovered/Resolved]
  - Eructation [Recovered/Resolved]

NARRATIVE: CASE EVENT DATE: 20200322
